FAERS Safety Report 7213202-6 (Version None)
Quarter: 2011Q1

REPORT INFORMATION
  Report Type: 
  Country: None (occurrence: None)
  Receive Date: 20110106
  Receipt Date: 20110103
  Transmission Date: 20110831
  Serious: Yes (Other)
  Sender: FDA-Public Use
  Company Number: US-ABBOTT-10P-163-0659030-00

PATIENT
  Sex: Female
  Weight: 45.4 kg

DRUGS (4)
  1. ACTONEL [Concomitant]
     Indication: RHEUMATOID ARTHRITIS
  2. HUMIRA [Suspect]
     Indication: RHEUMATOID ARTHRITIS
     Dates: start: 20030101
  3. MULTIVITAMIN [Concomitant]
     Indication: VITAMIN SUPPLEMENTATION
  4. ACTONEL [Concomitant]
     Indication: OSTEOPOROSIS

REACTIONS (3)
  - SKIN ULCER [None]
  - PAIN IN EXTREMITY [None]
  - SKIN CANCER [None]
